FAERS Safety Report 6782185-5 (Version None)
Quarter: 2010Q2

REPORT INFORMATION
  Report Type: 
  Country: None (occurrence: None)
  Receive Date: 20100618
  Receipt Date: 20100618
  Transmission Date: 20101027
  Serious: Yes (Hospitalization)
  Sender: FDA-Public Use
  Company Number: None

PATIENT
  Sex: Male
  Weight: 82.81 kg

DRUGS (1)
  1. ZOMETA [Suspect]
     Dosage: 3.3 MG

REACTIONS (8)
  - ASTHENIA [None]
  - DIZZINESS [None]
  - GASTROINTESTINAL HAEMORRHAGE [None]
  - ILEAL ULCER [None]
  - MELAENA [None]
  - PNEUMONIA [None]
  - PROCEDURAL COMPLICATION [None]
  - SEPSIS [None]
